FAERS Safety Report 7340551-3 (Version None)
Quarter: 2011Q1

REPORT INFORMATION
  Report Type: 
  Country: None (occurrence: None)
  Receive Date: 20110301
  Receipt Date: 20110217
  Transmission Date: 20110831
  Serious: Yes (Other)
  Sender: FDA-Public Use
  Company Number: 2011P1004289

PATIENT
  Age: 14 Year
  Sex: Female
  Weight: 120 kg

DRUGS (2)
  1. SOLODYN [Suspect]
     Indication: ACNE
     Dosage: 55 MG; QD; PO
     Route: 048
     Dates: start: 20101223, end: 20110125
  2. VELTIN GEL (CLINDAMYCIN PHOSPHATE AND  TRETINOIN) [Concomitant]

REACTIONS (3)
  - UNRESPONSIVE TO STIMULI [None]
  - CONVULSION [None]
  - STARING [None]
